FAERS Safety Report 12427430 (Version 3)
Quarter: 2016Q3

REPORT INFORMATION
  Report Type: Report from Study
  Country: DE (occurrence: DE)
  Receive Date: 20160602
  Receipt Date: 20160712
  Transmission Date: 20161109
  Serious: Yes (Hospitalization)
  Sender: FDA-Public Use
  Company Number: DE-AMGEN-DEUNI2016069892

PATIENT
  Age: 78 Year
  Sex: Male
  Weight: 88 kg

DRUGS (7)
  1. METOPROLOL. [Concomitant]
     Active Substance: METOPROLOL
     Indication: HYPERTENSION
     Dosage: UNK
     Route: 048
     Dates: start: 200107
  2. LISINOPRIL. [Concomitant]
     Active Substance: LISINOPRIL
     Indication: HYPERTENSION
     Dosage: UNK
     Route: 048
     Dates: start: 200107
  3. INEGY [Concomitant]
     Active Substance: EZETIMIBE\SIMVASTATIN
     Indication: HYPERLIPIDAEMIA
     Dosage: UNK
     Route: 048
     Dates: start: 200107
  4. ETANERCEPT [Suspect]
     Active Substance: ETANERCEPT
     Indication: RHEUMATOID ARTHRITIS
     Dosage: 50 MG, QWK
     Route: 065
     Dates: start: 20150511, end: 20151204
  5. ASPIRIN. [Concomitant]
     Active Substance: ASPIRIN
     Indication: CORONARY ARTERY DISEASE
     Dosage: 100 UNK, UNK
     Route: 048
     Dates: start: 200107
  6. TILIDIN [Concomitant]
     Active Substance: NALOXONE HYDROCHLORIDE\TILIDINE HYDROCHLORIDE
     Indication: RHEUMATOID ARTHRITIS
     Dosage: 50/4 MG
     Route: 048
     Dates: start: 201209
  7. DEKRISTOL [Concomitant]
     Active Substance: CHOLECALCIFEROL
     Indication: OSTEOPENIA
     Dosage: UNK
     Route: 048
     Dates: start: 200405

REACTIONS (2)
  - Arthralgia [Recovered/Resolved]
  - Drug ineffective [Recovered/Resolved]

NARRATIVE: CASE EVENT DATE: 20151204
